FAERS Safety Report 16109985 (Version 1)
Quarter: 2019Q1

REPORT INFORMATION
  Report Type: Report from Study
  Country: MX (occurrence: MX)
  Receive Date: 20190325
  Receipt Date: 20190325
  Transmission Date: 20190418
  Serious: Yes (Hospitalization, Other)
  Sender: FDA-Public Use
  Company Number: MX-ROCHE-2285746

PATIENT
  Age: 54 Year
  Sex: Female
  Weight: 97 kg

DRUGS (11)
  1. XOLAIR [Suspect]
     Active Substance: OMALIZUMAB
     Indication: ASTHMA
     Dosage: 3 DF, QMO
     Route: 065
     Dates: start: 201704
  2. SPIRIVA [Concomitant]
     Active Substance: TIOTROPIUM BROMIDE MONOHYDRATE
     Indication: ASTHMA
     Dosage: 2 DF, BID (1 IN MORNING AND 1 IN THE NIGHT) (STARTED 4 YEARS AGO)
     Route: 055
  3. MONTELUKAST [Concomitant]
     Active Substance: MONTELUKAST SODIUM
     Indication: HYPERSENSITIVITY
     Dosage: 1 DF, QD (STARTED 4 YEARS AGO)
     Route: 048
  4. XOLAIR [Suspect]
     Active Substance: OMALIZUMAB
     Dosage: UNK (75/0.5 ML)
     Route: 065
  5. COMBIVENT [Concomitant]
     Active Substance: ALBUTEROL SULFATE\IPRATROPIUM BROMIDE
     Indication: ASTHMA
     Dosage: 4 DF, QD (STARTED 4 YEARS AGO)
     Route: 055
  6. LEVOCETIRIZINE [Concomitant]
     Active Substance: LEVOCETIRIZINE
     Indication: ASTHMA
     Dosage: 1 DF, QD (STARTED 4 YEARS AGO)
     Route: 048
  7. COMBIVENT [Concomitant]
     Active Substance: ALBUTEROL SULFATE\IPRATROPIUM BROMIDE
     Dosage: 6 DF (SHOTS), UNK (DAILY WITH INTERVAL OF 20 MINUTES) (3 YEARS AGO)
     Route: 055
  8. ULTIBRO BREEZHALER [Suspect]
     Active Substance: GLYCOPYRRONIUM\INDACATEROL
     Indication: ASTHMA
     Dosage: 1 DF, QD (EVERY 24 HOURS)
     Route: 055
     Dates: start: 201805
  9. SERETIDE [Concomitant]
     Active Substance: FLUTICASONE PROPIONATE\SALMETEROL XINAFOATE
     Indication: ASTHMA
     Dosage: 2 DF, BID (1 IN MORNING AND 1 IN NIGHT) (STARTED 3 YEARS AGO)
     Route: 048
  10. XOLAIR [Suspect]
     Active Substance: OMALIZUMAB
     Indication: HYPERSENSITIVITY
     Dosage: 3 DF (75/0.5 ML), EVERY 15 DAYS (3 YEARS AGO)
     Route: 065
     Dates: start: 2014, end: 201704
  11. LORATADINE. [Concomitant]
     Active Substance: LORATADINE
     Indication: ASTHMA
     Dosage: 1 DF, QD (EVERY 24 HOURS)
     Route: 048
     Dates: start: 201804, end: 201806

REACTIONS (10)
  - Product use in unapproved indication [Unknown]
  - Off label use [Unknown]
  - Decreased immune responsiveness [Unknown]
  - Bronchiectasis [Unknown]
  - Asthmatic crisis [Recovering/Resolving]
  - Drug ineffective [Unknown]
  - Urticaria [Not Recovered/Not Resolved]
  - Asthma [Unknown]
  - Respiratory tract infection [Recovered/Resolved]
  - Hypersensitivity [Unknown]

NARRATIVE: CASE EVENT DATE: 201704
